FAERS Safety Report 19436672 (Version 1)
Quarter: 2021Q2

REPORT INFORMATION
  Report Type: Spontaneous
  Country: US (occurrence: US)
  Receive Date: 20210618
  Receipt Date: 20210618
  Transmission Date: 20210717
  Serious: No
  Sender: FDA-Public Use
  Company Number: US-GLAXOSMITHKLINE-US2021AMR127335

PATIENT
  Sex: Female

DRUGS (1)
  1. BENLYSTA [Suspect]
     Active Substance: BELIMUMAB
     Indication: LUPUS NEPHRITIS
     Dosage: 200 MG/ML, 1 PREFILLED PEN WEEKLY
     Route: 058
     Dates: start: 20210610

REACTIONS (3)
  - Device use issue [Recovered/Resolved]
  - Product label confusion [Unknown]
  - Off label use [Unknown]
